FAERS Safety Report 4751208-7 (Version None)
Quarter: 2005Q3

REPORT INFORMATION
  Report Type: 
  Country: None (occurrence: None)
  Receive Date: 20050822
  Receipt Date: 20050822
  Transmission Date: 20060218
  Serious: Yes (Other)
  Sender: FDA-Public Use
  Company Number: None

PATIENT
  Sex: Female
  Weight: 84.369 kg

DRUGS (2)
  1. OXYCODONE ER (ENDO) [Suspect]
     Indication: FIBROMYALGIA
     Dosage: 40 MGM PO BID ; 20 MGM PO BID
     Dates: start: 20050501, end: 20050801
  2. OXYCODONE ER (ENDO) [Suspect]
     Indication: RHEUMATOID ARTHRITIS
     Dosage: 40 MGM PO BID ; 20 MGM PO BID
     Dates: start: 20050501, end: 20050801

REACTIONS (6)
  - CONDITION AGGRAVATED [None]
  - CONSTIPATION [None]
  - DIVERTICULITIS [None]
  - DRUG EFFECT DECREASED [None]
  - PHARMACEUTICAL PRODUCT COMPLAINT [None]
  - THERAPEUTIC RESPONSE UNEXPECTED WITH DRUG SUBSTITUTION [None]
